FAERS Safety Report 6164250-9 (Version None)
Quarter: 2009Q2

REPORT INFORMATION
  Report Type: 
  Country: None (occurrence: None)
  Receive Date: 20090422
  Receipt Date: 20090414
  Transmission Date: 20091009
  Serious: Yes (Death, Other)
  Sender: FDA-Public Use
  Company Number: FR-BAXTER-2009BH005997

PATIENT
  Age: 38 Year
  Sex: Male

DRUGS (7)
  1. HOLOXAN BAXTER [Suspect]
     Indication: SARCOMA
     Route: 042
     Dates: start: 20010101, end: 20010601
  2. HOLOXAN BAXTER [Suspect]
     Dosage: DOSE UNIT:GRAMS PER METERS SQUARED
     Route: 042
     Dates: start: 20000101, end: 20010301
  3. HOLOXAN BAXTER [Suspect]
     Dosage: DOSE UNIT:GRAMS PER METERS SQUARED
     Route: 042
     Dates: start: 19921001, end: 19930301
  4. ETOPOSIDE [Suspect]
     Indication: SARCOMA
     Route: 042
     Dates: start: 20000101, end: 20010301
  5. ADRIAMYCIN PFS [Suspect]
     Indication: SARCOMA
     Route: 042
     Dates: start: 19921001, end: 19930301
  6. ADRIAMYCIN PFS [Suspect]
     Route: 042
     Dates: start: 20010101, end: 20010601
  7. DETICENE [Concomitant]
     Indication: SARCOMA
     Route: 042
     Dates: start: 19921001, end: 19930301

REACTIONS (1)
  - RENAL FAILURE CHRONIC [None]
